FAERS Safety Report 4885786-4 (Version None)
Quarter: 2006Q1

REPORT INFORMATION
  Report Type: 
  Country: None (occurrence: None)
  Receive Date: 20060117
  Receipt Date: 20060103
  Transmission Date: 20060701
  Serious: Yes (Hospitalization)
  Sender: FDA-Public Use
  Company Number: 2006-BP-00096RO

PATIENT
  Age: 62 Year
  Sex: Female

DRUGS (3)
  1. LITHIUM CARBONATE [Suspect]
     Indication: BIPOLAR DISORDER
     Dosage: 900 MG/DAY
  2. OLANZAPINE [Suspect]
     Indication: HALLUCINATION, AUDITORY
     Dosage: 5 MG/DAY
  3. CHLORPROMAZINE [Suspect]
     Indication: INSOMNIA
     Dosage: 200 MG/DAY

REACTIONS (13)
  - ACUTE PRERENAL FAILURE [None]
  - BLOOD GLUCOSE INCREASED [None]
  - DELIRIUM [None]
  - DRUG INTERACTION [None]
  - DYSARTHRIA [None]
  - EXTRAPYRAMIDAL DISORDER [None]
  - GAZE PALSY [None]
  - HALLUCINATION, AUDITORY [None]
  - LACUNAR INFARCTION [None]
  - MANIA [None]
  - SINUS BRADYCARDIA [None]
  - THERAPEUTIC AGENT TOXICITY [None]
  - WHITE BLOOD CELL COUNT INCREASED [None]
